FAERS Safety Report 5408715-3 (Version None)
Quarter: 2007Q3

REPORT INFORMATION
  Report Type: 
  Country: None (occurrence: None)
  Receive Date: 20070808
  Receipt Date: 20070802
  Transmission Date: 20080115
  Serious: Yes (Disabling)
  Sender: FDA-Public Use
  Company Number: A0668465A

PATIENT
  Age: 53 Year
  Sex: Female
  Weight: 75 kg

DRUGS (6)
  1. AVANDIA [Suspect]
     Dates: start: 20010101
  2. NSAIDS [Concomitant]
     Indication: ARTHRITIS
     Dates: start: 19840101
  3. NAPROXEN [Concomitant]
     Indication: ARTHRITIS
  4. NOVOTIRAL [Concomitant]
     Indication: HYPOTHYROIDISM
     Dates: start: 19950101
  5. DROSPIRENONE [Concomitant]
     Indication: MENOPAUSE
     Dosage: 2MG AS REQUIRED
  6. ESTRADIOL [Concomitant]
     Indication: MENOPAUSE
     Dosage: 1MG AS REQUIRED

REACTIONS (1)
  - FATIGUE [None]
